FAERS Safety Report 8171156-2 (Version None)
Quarter: 2012Q1

REPORT INFORMATION
  Report Type: 
  Country: None (occurrence: None)
  Receive Date: 20120228
  Receipt Date: 20111110
  Transmission Date: 20120608
  Serious: No
  Sender: FDA-Public Use
  Company Number: US-BRISTOL-MYERS SQUIBB COMPANY-16224255

PATIENT
  Age: 74 Year
  Sex: Female

DRUGS (3)
  1. METFORMIN HCL [Concomitant]
  2. ONGLYZA [Suspect]
     Indication: DIABETES MELLITUS
  3. IBUPROFEN (ADVIL) [Concomitant]

REACTIONS (2)
  - RASH [None]
  - URTICARIA [None]
